FAERS Safety Report 9776993 (Version 3)
Quarter: 2014Q1

REPORT INFORMATION
  Report Type: Spontaneous
  Country: JP (occurrence: JP)
  Receive Date: 20131221
  Receipt Date: 20140118
  Transmission Date: 20141002
  Serious: Yes (Other)
  Sender: FDA-Public Use
  Company Number: JP-009507513-1311JPN002347

PATIENT
  Age: 72 Year
  Sex: Female
  Weight: 50 kg

DRUGS (13)
  1. REBETOL [Suspect]
     Indication: CHRONIC HEPATITIS C
     Dosage: EVENING 200 MG, 400 MG IN MORNING
     Route: 048
     Dates: start: 20130903, end: 20131001
  2. FERON [Suspect]
     Indication: CHRONIC HEPATITIS C
     Dosage: 6 (DAILY DOSE UNKNOWN)
     Route: 042
     Dates: start: 20130903, end: 20130924
  3. FERON [Suspect]
     Dosage: 3 (DAILY DOSE UNKNOWN)
     Route: 042
     Dates: start: 20130925, end: 20130930
  4. AMLODIN OD [Concomitant]
     Indication: HYPERTENSION
     Dosage: 10 MG, QD
     Route: 048
     Dates: start: 20130426, end: 20130904
  5. BLOPRESS [Concomitant]
     Indication: HYPERTENSION
     Dosage: 8 MG, QD
     Route: 048
     Dates: start: 20130426
  6. GLYCYRRHIZA KORSHINSKYI [Concomitant]
     Indication: DECREASED APPETITE
     Dosage: 1.3 G, TID
     Route: 048
     Dates: start: 20130426
  7. LOXONIN [Concomitant]
     Indication: BACK PAIN
     Dosage: 60 MG, TID
     Route: 048
     Dates: start: 20130426
  8. URSODIOL [Concomitant]
     Indication: HEPATIC FUNCTION ABNORMAL
     Dosage: 200 MG, TID
     Route: 048
     Dates: start: 20130426, end: 20130901
  9. GLYCYRON [Concomitant]
     Indication: HEPATIC FUNCTION ABNORMAL
     Dosage: 2 DF, TID
     Route: 048
     Dates: start: 20130426, end: 20130901
  10. PANVITAN [Concomitant]
     Indication: VITAMIN SUPPLEMENTATION
     Dosage: 0.66 G, TID
     Route: 048
     Dates: start: 20130426
  11. TOFRANIL [Concomitant]
     Indication: DEPRESSION
     Dosage: 20 MG, TID
     Route: 048
     Dates: start: 20130426
  12. SOLANAX [Concomitant]
     Indication: DEPRESSION
     Dosage: 0.4 MG, TID
     Route: 048
     Dates: start: 20130426
  13. ALDACTONE A [Concomitant]
     Indication: HYPERTENSION
     Dosage: 25 MG, QD
     Route: 048
     Dates: start: 20130426

REACTIONS (4)
  - Persecutory delusion [Recovering/Resolving]
  - Anxiety [Recovering/Resolving]
  - Hallucination, visual [Recovering/Resolving]
  - Platelet count decreased [Recovered/Resolved]
